FAERS Safety Report 10241232 (Version 1)
Quarter: 2014Q2

REPORT INFORMATION
  Report Type: Spontaneous
  Country: JP (occurrence: JP)
  Receive Date: 20140617
  Receipt Date: 20140617
  Transmission Date: 20141212
  Serious: Yes (Other)
  Sender: FDA-Public Use
  Company Number: JP-BAYER-2014-087463

PATIENT
  Age: 46 Year
  Sex: Male

DRUGS (2)
  1. INTERFERON BETA - 1B [Suspect]
     Indication: RELAPSING-REMITTING MULTIPLE SCLEROSIS
  2. INTERFERON BETA - 1B [Suspect]
     Indication: RELAPSING-REMITTING MULTIPLE SCLEROSIS

REACTIONS (3)
  - Multiple sclerosis relapse [None]
  - Urinary retention [None]
  - No therapeutic response [None]
